FAERS Safety Report 14259275 (Version 1)
Quarter: 2017Q4

REPORT INFORMATION
  Report Type: Other
  Country: FI (occurrence: FI)
  Receive Date: 20171207
  Receipt Date: 20171207
  Transmission Date: 20180321
  Serious: Yes (Disabling)
  Sender: FDA-Public Use
  Company Number: FI-CELLTRION HEALTHCARE JAPAN K.K.-2017FI016494

PATIENT

DRUGS (14)
  1. BURANA [Concomitant]
     Active Substance: IBUPROFEN
  2. PANACOD [Concomitant]
     Active Substance: ACETAMINOPHEN\CODEINE PHOSPHATE
     Dosage: 1-2X3
     Dates: start: 20170302
  3. OXIKLORIN [Concomitant]
     Active Substance: HYDROXYCHLOROQUINE SULFATE
     Dosage: UNK
     Dates: start: 20160405
  4. NEURONTIN [Concomitant]
     Active Substance: GABAPENTIN
     Dosage: UNK
     Dates: start: 20170210
  5. MIGARD [Concomitant]
     Active Substance: FROVATRIPTAN SUCCINATE
     Dosage: UNK
     Dates: start: 20161020
  6. REMSIMA [Suspect]
     Active Substance: INFLIXIMAB
     Dosage: 250 MG, UNK
     Route: 065
     Dates: start: 20161219, end: 20161219
  7. PANACOD [Concomitant]
     Active Substance: ACETAMINOPHEN\CODEINE PHOSPHATE
     Dosage: 8 DF, UNK
     Dates: start: 20170209
  8. PANACOD [Concomitant]
     Active Substance: ACETAMINOPHEN\CODEINE PHOSPHATE
     Dosage: 1-2X3
     Dates: start: 20140929
  9. ZOMIG [Concomitant]
     Active Substance: ZOLMITRIPTAN
     Dosage: UNK
     Route: 045
     Dates: start: 20170515
  10. REMSIMA [Suspect]
     Active Substance: INFLIXIMAB
     Indication: RHEUMATIC DISORDER
     Dosage: UNK
     Route: 065
     Dates: start: 20160128, end: 20160128
  11. REMICADE [Suspect]
     Active Substance: INFLIXIMAB
     Indication: SACROILIITIS
     Dosage: 300 MG, EVERY 6 WEEKS
     Dates: start: 20150820, end: 20170904
  12. AZAMUN [Concomitant]
     Active Substance: AZATHIOPRINE
     Dosage: UNK
     Dates: start: 20160815
  13. NORSPAN [Concomitant]
     Active Substance: BUPRENORPHINE
     Dosage: 1X1
  14. REMSIMA [Suspect]
     Active Substance: INFLIXIMAB
     Dosage: UNK
     Route: 065
     Dates: start: 20170131, end: 20170131

REACTIONS (6)
  - Memory impairment [Unknown]
  - Pain [Not Recovered/Not Resolved]
  - Nausea [Unknown]
  - Dyspnoea [Unknown]
  - Fatigue [Not Recovered/Not Resolved]
  - Migraine [Unknown]
